FAERS Safety Report 24374273 (Version 1)
Quarter: 2024Q3

REPORT INFORMATION
  Report Type: Spontaneous
  Country: IT (occurrence: IT)
  Receive Date: 20240927
  Receipt Date: 20240927
  Transmission Date: 20241016
  Serious: Yes (Other)
  Sender: MYLAN
  Company Number: IT-BEH-2024178403

PATIENT
  Age: 40 Year
  Sex: Male

DRUGS (5)
  1. TRANEXAMIC ACID [Suspect]
     Active Substance: TRANEXAMIC ACID
     Indication: Prothrombin time prolonged
     Dosage: UNK
     Route: 065
  2. TRANEXAMIC ACID [Suspect]
     Active Substance: TRANEXAMIC ACID
     Indication: Activated partial thromboplastin time prolonged
  3. PROTHROMBIN COMPLEX CONCENTRATE [Suspect]
     Active Substance: COAGULATION FACTOR IX HUMAN\COAGULATION FACTOR VII HUMAN\COAGULATION FACTOR X HUMAN\PROTEIN C\PROTEI
     Indication: Activated partial thromboplastin time prolonged
     Dosage: UNK
     Route: 065
  4. PROTHROMBIN COMPLEX CONCENTRATE [Suspect]
     Active Substance: COAGULATION FACTOR IX HUMAN\COAGULATION FACTOR VII HUMAN\COAGULATION FACTOR X HUMAN\PROTEIN C\PROTEI
     Indication: Prothrombin time prolonged
  5. ENOXAPARIN [Concomitant]
     Active Substance: ENOXAPARIN
     Dosage: 4000 INTERNATIONAL UNIT, QD
     Route: 065

REACTIONS (8)
  - Acute myocardial infarction [Unknown]
  - Myocardial necrosis marker increased [Unknown]
  - Chest pain [Unknown]
  - Dyspnoea [Unknown]
  - Sinus tachycardia [Unknown]
  - Coronary artery embolism [Unknown]
  - Hypotension [Unknown]
  - Coronary artery thrombosis [Unknown]
